FAERS Safety Report 5600206-X (Version None)
Quarter: 2008Q1

REPORT INFORMATION
  Report Type: 
  Country: None (occurrence: None)
  Receive Date: 20080123
  Receipt Date: 20080111
  Transmission Date: 20080703
  Serious: Yes (Hospitalization)
  Sender: FDA-Public Use
  Company Number: US-KINGPHARMUSA00001-K200800036

PATIENT

DRUGS (6)
  1. ALTACE [Suspect]
     Indication: HYPERTENSION
     Dosage: 2.5 MG, QD
     Route: 048
     Dates: start: 19960101
  2. FENOFIBRATE [Suspect]
     Indication: DYSLIPIDAEMIA
     Dosage: 200 MG, QD
     Route: 048
     Dates: start: 19960101
  3. FUROSEMIDE [Suspect]
     Indication: HYPERTENSION
     Dosage: 20 MG, QD
     Route: 048
  4. ART 50 [Suspect]
     Indication: MUSCULOSKELETAL PAIN
     Dosage: 100 MG, BID
     Route: 048
  5. IKOREL [Suspect]
     Dosage: 20 MG, BID
     Route: 048
  6. DICYNONE [Suspect]
     Dosage: 1000 MG, BID
     Route: 048

REACTIONS (6)
  - ABDOMINAL PAIN [None]
  - CHOLELITHIASIS OBSTRUCTIVE [None]
  - CHROMATURIA [None]
  - FAECES DISCOLOURED [None]
  - INFLAMMATION [None]
  - PANCREATITIS ACUTE [None]
